FAERS Safety Report 11614639 (Version 1)
Quarter: 2015Q4

REPORT INFORMATION
  Report Type: Spontaneous
  Country: US (occurrence: US)
  Receive Date: 20151009
  Receipt Date: 20151009
  Transmission Date: 20160304
  Serious: No
  Sender: FDA-Public Use
  Company Number: US-PAR PHARMACEUTICAL, INC-2014SCPR009323

PATIENT

DRUGS (1)
  1. FENTANYL TRANSDERMAL SYSTEM [Suspect]
     Active Substance: FENTANYL
     Indication: PAIN
     Dosage: UNK UNK, UNKNOWN
     Route: 062

REACTIONS (3)
  - Application site erythema [Recovered/Resolved]
  - Application site reaction [Recovered/Resolved]
  - Application site pruritus [Recovered/Resolved]
